FAERS Safety Report 6197663-X (Version None)
Quarter: 2009Q2

REPORT INFORMATION
  Report Type: 
  Country: None (occurrence: None)
  Receive Date: 20090521
  Receipt Date: 20090429
  Transmission Date: 20091009
  Serious: No
  Sender: FDA-Public Use
  Company Number: US-B.I. PHARMACEUTICALS,INC./RIDGEFIELD-2009-BP-05381BP

PATIENT
  Sex: Male

DRUGS (4)
  1. FLOMAX [Suspect]
     Indication: POLLAKIURIA
     Dosage: .4MG
     Dates: start: 20090407
  2. CYMBALTA [Concomitant]
  3. ANDROGEL [Concomitant]
  4. STRATTERA [Concomitant]

REACTIONS (15)
  - CONCUSSION [None]
  - CONTUSION [None]
  - DYSARTHRIA [None]
  - FALL [None]
  - HEAD INJURY [None]
  - HEADACHE [None]
  - LACK OF SPONTANEOUS SPEECH [None]
  - LOSS OF CONSCIOUSNESS [None]
  - LOSS OF CONTROL OF LEGS [None]
  - NECK INJURY [None]
  - SCRATCH [None]
  - SKELETAL INJURY [None]
  - TREMOR [None]
  - WRIST FRACTURE [None]
  - WRIST SURGERY [None]
